FAERS Safety Report 4897036-3 (Version None)
Quarter: 2005Q4

REPORT INFORMATION
  Report Type: 
  Country: None (occurrence: None)
  Receive Date: 20051228
  Receipt Date: 20051101
  Transmission Date: 20060501
  Serious: Yes (Hospitalization, Other)
  Sender: FDA-Public Use
  Company Number: US_0411107609

PATIENT
  Age: 44 Year
  Sex: Male
  Weight: 100 kg

DRUGS (10)
  1. ZYPREXA [Suspect]
     Dosage: 15 MG AT BEDTIME
     Dates: start: 19980909, end: 20020101
  2. PROZAC [Suspect]
     Dosage: 30 MG/1 DAY
     Dates: start: 19990127, end: 20020530
  3. HUMULIN 70/30 [Suspect]
     Indication: DIABETES MELLITUS
     Dates: start: 19980101
  4. SYMBYAX [Suspect]
     Dates: start: 19990310, end: 20011226
  5. ASPIRIN [Concomitant]
  6. CLONOPIN (CLONAZEPAM) [Concomitant]
  7. BUPROPION [Concomitant]
  8. POTASSIUM CHLORIDE [Concomitant]
  9. PHENERGAN [Concomitant]
  10. MYLANTA-II [Concomitant]

REACTIONS (13)
  - BLOOD PRESSURE INCREASED [None]
  - BUNDLE BRANCH BLOCK [None]
  - DIABETIC KETOACIDOSIS [None]
  - ERECTILE DYSFUNCTION [None]
  - GLYCOSURIA [None]
  - GYNAECOMASTIA [None]
  - HYPERGLYCAEMIA [None]
  - HYPOGLYCAEMIA [None]
  - OEDEMA PERIPHERAL [None]
  - PANCREATITIS [None]
  - POLYDIPSIA [None]
  - POLYURIA [None]
  - SOMNOLENCE [None]
